FAERS Safety Report 9725289 (Version 2)
Quarter: 2013Q4

REPORT INFORMATION
  Report Type: Spontaneous
  Country: US (occurrence: None)
  Receive Date: 20131129
  Receipt Date: 20131212
  Transmission Date: 20140711
  Serious: Yes (Hospitalization)
  Sender: FDA-Public Use
  Company Number: AUR-APL-2013-09777

PATIENT
  Age: 33 Year
  Sex: Male
  Weight: 150 kg

DRUGS (3)
  1. AMLODIPINE [Suspect]
     Indication: HYPERTENSION
  2. LISINOPRIL (LISINOPRIL) [Suspect]
     Indication: HYPERTENSION
  3. METOPROLOL [Suspect]
     Indication: HYPERTENSION

REACTIONS (11)
  - Pharyngeal oedema [None]
  - Odynophagia [None]
  - Hypertension [None]
  - Palatal oedema [None]
  - Pharyngeal erythema [None]
  - Adenoidal hypertrophy [None]
  - Tonsillar hypertrophy [None]
  - Angioedema [None]
  - Infection [None]
  - Neoplasm [None]
  - Injury [None]
